FAERS Safety Report 5793063-2 (Version None)
Quarter: 2008Q2

REPORT INFORMATION
  Report Type: 
  Country: None (occurrence: None)
  Receive Date: 20080627
  Receipt Date: 20080627
  Transmission Date: 20081010
  Serious: Yes (Other)
  Sender: FDA-Public Use
  Company Number: None

PATIENT
  Age: 81 Year
  Sex: Female
  Weight: 44.4525 kg

DRUGS (3)
  1. ALENDRONATE SODIUM [Suspect]
     Indication: OSTEOPOROSIS
     Dosage: 70 MG WEEKLY PO
     Route: 048
  2. LEVOTHYROXINE SODIUM [Concomitant]
  3. EVISTA [Concomitant]

REACTIONS (2)
  - DERMATITIS ALLERGIC [None]
  - SWELLING [None]
